FAERS Safety Report 13826317 (Version 1)
Quarter: 2017Q3

REPORT INFORMATION
  Report Type: Spontaneous
  Country: US (occurrence: US)
  Receive Date: 20170802
  Receipt Date: 20170802
  Transmission Date: 20171127
  Serious: No
  Sender: FDA-Public Use
  Company Number: US-PERRIGO-16US019112

PATIENT
  Age: 77 Year
  Sex: Male
  Weight: 87.53 kg

DRUGS (2)
  1. CARDIAC THERAPY [Concomitant]
     Active Substance: UNSPECIFIED INGREDIENT
     Indication: CARDIAC DISORDER
     Dosage: UNK
     Route: 065
  2. ECONAZOLE NITRATE. [Suspect]
     Active Substance: ECONAZOLE NITRATE
     Indication: TINEA CRURIS
     Dosage: SMALL AMOUNT, BID
     Route: 061
     Dates: start: 20160607, end: 201606

REACTIONS (3)
  - Drug ineffective [Unknown]
  - Inappropriate schedule of drug administration [None]
  - Condition aggravated [Recovered/Resolved]

NARRATIVE: CASE EVENT DATE: 20160607
